FAERS Safety Report 23720533 (Version 2)
Quarter: 2024Q2

REPORT INFORMATION
  Report Type: Report from Study
  Country: ES (occurrence: ES)
  Receive Date: 20240408
  Receipt Date: 20240506
  Transmission Date: 20240715
  Serious: No
  Sender: FDA-Public Use
  Company Number: ES-ABBVIE-5708826

PATIENT
  Sex: Female

DRUGS (2)
  1. CARBIDOPA\LEVODOPA [Suspect]
     Active Substance: CARBIDOPA\LEVODOPA
     Indication: Parkinson^s disease
     Dosage: CONTINUOUS DOSE 3.5 ML/H
     Route: 050
     Dates: start: 2024
  2. CARBIDOPA\LEVODOPA [Suspect]
     Active Substance: CARBIDOPA\LEVODOPA
     Route: 050
     Dates: start: 20220511, end: 2024

REACTIONS (2)
  - Cognitive disorder [Not Recovered/Not Resolved]
  - Hallucination [Recovering/Resolving]
